FAERS Safety Report 8587997-3 (Version None)
Quarter: 2012Q3

REPORT INFORMATION
  Report Type: 
  Country: None (occurrence: None)
  Receive Date: 20120813
  Receipt Date: 20120807
  Transmission Date: 20120928
  Serious: No
  Sender: FDA-Public Use
  Company Number: US-009507513-1208USA004096

PATIENT

DRUGS (15)
  1. ATENOLOL [Concomitant]
     Dosage: UNK
  2. DIAZEPAM [Concomitant]
     Dosage: UNK
  3. PENNSAID [Concomitant]
     Dosage: UNK
  4. HYDROCHLOROTHIAZIDE [Concomitant]
     Dosage: UNK
  5. ACTONEL [Concomitant]
     Dosage: UNK
  6. COMPAZINE [Concomitant]
     Dosage: UNK
  7. LIPITOR [Concomitant]
     Dosage: UNK
  8. MUCINEX [Concomitant]
     Dosage: UNK
  9. NORCO [Concomitant]
     Dosage: UNK
  10. HYOSCYAMINE [Concomitant]
     Dosage: UNK
  11. LYRICA [Concomitant]
     Dosage: UNK
  12. FLUOXETINE HCL [Concomitant]
     Dosage: UNK
  13. REMERON [Suspect]
     Indication: ANXIETY
     Dosage: 1 DF, HS
     Dates: start: 20120101
  14. REMERON [Suspect]
     Indication: SLEEP DISORDER
  15. PROTONIX [Concomitant]
     Dosage: UNK

REACTIONS (2)
  - OEDEMA PERIPHERAL [None]
  - PAIN IN EXTREMITY [None]
